FAERS Safety Report 11305826 (Version 1)
Quarter: 2015Q3

REPORT INFORMATION
  Report Type: Spontaneous
  Country: US (occurrence: US)
  Receive Date: 20150723
  Receipt Date: 20150723
  Transmission Date: 20151125
  Serious: No
  Sender: FDA-Public Use
  Company Number: US-LEO PHARMA-235677

PATIENT
  Sex: Male

DRUGS (1)
  1. PICATO [Suspect]
     Active Substance: INGENOL MEBUTATE
     Indication: SOLAR LENTIGO
     Route: 061
     Dates: start: 20150705, end: 20150707

REACTIONS (6)
  - Drug administered at inappropriate site [Unknown]
  - Application site pruritus [Recovered/Resolved]
  - Application site erythema [Recovering/Resolving]
  - Product packaging quantity issue [Unknown]
  - Application site scab [Recovered/Resolved]
  - Inappropriate schedule of drug administration [Unknown]
